FAERS Safety Report 17543008 (Version 1)
Quarter: 2020Q1

REPORT INFORMATION
  Report Type: Report from Study
  Country: US (occurrence: US)
  Receive Date: 20200316
  Receipt Date: 20200316
  Transmission Date: 20200409
  Serious: Yes (Other)
  Sender: FDA-Public Use
  Company Number: US-BIOGEN-2020BI00848093

PATIENT
  Sex: Female

DRUGS (1)
  1. TECFIDERA [Suspect]
     Active Substance: DIMETHYL FUMARATE
     Indication: MULTIPLE SCLEROSIS
     Dosage: MIANTENANCE DOSE
     Route: 048
     Dates: start: 20200107

REACTIONS (6)
  - Deafness unilateral [Unknown]
  - Neck pain [Unknown]
  - Blindness [Unknown]
  - Musculoskeletal chest pain [Unknown]
  - Headache [Unknown]
  - Disorientation [Unknown]
